FAERS Safety Report 21940297 (Version 1)
Quarter: 2023Q1

REPORT INFORMATION
  Report Type: Spontaneous
  Country: US (occurrence: US)
  Receive Date: 20230201
  Receipt Date: 20230201
  Transmission Date: 20230417
  Serious: No
  Sender: FDA-Public Use
  Company Number: US-ABBVIE-4291637

PATIENT
  Age: 73 Year
  Sex: Male

DRUGS (3)
  1. IMBRUVICA [Suspect]
     Active Substance: IBRUTINIB
     Indication: Product used for unknown indication
     Dosage: TIME INTERVAL: 0.33333333 DAYS
     Route: 048
  2. CEFUROXIME [Concomitant]
     Active Substance: CEFUROXIME
     Indication: Pneumonia
  3. PREDNISONE [Concomitant]
     Active Substance: PREDNISONE
     Indication: Pneumonia

REACTIONS (1)
  - Pneumonia [Unknown]

NARRATIVE: CASE EVENT DATE: 20230101
